FAERS Safety Report 21124366 (Version 1)
Quarter: 2022Q3

REPORT INFORMATION
  Report Type: Spontaneous
  Country: ES (occurrence: ES)
  Receive Date: 20220725
  Receipt Date: 20220725
  Transmission Date: 20221026
  Serious: Yes (Hospitalization)
  Sender: FDA-Public Use
  Company Number: ES-SUN PHARMACEUTICAL INDUSTRIES LTD-2022RR-345853

PATIENT
  Age: 79 Year
  Sex: Male

DRUGS (6)
  1. CITALOPRAM [Interacting]
     Active Substance: CITALOPRAM HYDROBROMIDE
     Indication: Depression
     Dosage: 20 MILLIGRAM, DAILY
     Route: 048
     Dates: start: 20220225
  2. PREGABALIN [Interacting]
     Active Substance: PREGABALIN
     Indication: Pain
     Dosage: 75 MILLIGRAM, DAILY
     Route: 048
     Dates: start: 20220509, end: 20220519
  3. FUROSEMIDE [Interacting]
     Active Substance: FUROSEMIDE
     Indication: Transfusion reaction
     Dosage: 10 MILLIGRAM, 1DOSE/AS NECESSARY
     Route: 040
     Dates: start: 20220507, end: 20220507
  4. PREGABALIN [Concomitant]
     Active Substance: PREGABALIN
     Indication: Pain
     Dosage: 25 MILLIGRAM, TID
     Route: 048
     Dates: start: 20220507, end: 20220509
  5. GLICLAZIDE [Concomitant]
     Active Substance: GLICLAZIDE
     Indication: Diabetes mellitus
     Dosage: 30 MILLIGRAM, DAILY
     Route: 048
     Dates: start: 20200207
  6. ENALAPRIL [Concomitant]
     Active Substance: ENALAPRIL
     Indication: Hypertension
     Dosage: 5 MILLIGRAM, DAILY
     Route: 048
     Dates: start: 201207

REACTIONS (1)
  - Hyponatraemia [Recovered/Resolved]

NARRATIVE: CASE EVENT DATE: 20220511
